FAERS Safety Report 21307624 (Version 1)
Quarter: 2022Q3

REPORT INFORMATION
  Report Type: Spontaneous
  Country: US (occurrence: US)
  Receive Date: 20220908
  Receipt Date: 20220908
  Transmission Date: 20221027
  Serious: Yes (Hospitalization)
  Sender: FDA-Public Use
  Company Number: US-CTI BIOPHARMA-2022US02909

PATIENT
  Age: 79 Year
  Sex: Male

DRUGS (1)
  1. VONJO [Suspect]
     Active Substance: PACRITINIB
     Indication: Myelofibrosis
     Dosage: 200 MILLIGRAM, BID
     Dates: start: 20220325

REACTIONS (2)
  - COVID-19 [Unknown]
  - Vessel puncture site haemorrhage [Unknown]

NARRATIVE: CASE EVENT DATE: 20220601
